FAERS Safety Report 8009017-1 (Version None)
Quarter: 2011Q4

REPORT INFORMATION
  Report Type: 
  Country: None (occurrence: None)
  Receive Date: 20111227
  Receipt Date: 20111222
  Transmission Date: 20120403
  Serious: No
  Sender: FDA-Public Use
  Company Number: US-PFIZER INC-2011311771

PATIENT

DRUGS (1)
  1. LIPITOR [Suspect]
     Dosage: 10 MG, ONCE DAILY

REACTIONS (1)
  - SPEECH DISORDER [None]
